FAERS Safety Report 16657023 (Version 2)
Quarter: 2019Q4

REPORT INFORMATION
  Report Type: Spontaneous
  Country: US (occurrence: US)
  Receive Date: 20190801
  Receipt Date: 20191022
  Transmission Date: 20200122
  Serious: No
  Sender: FDA-Public Use
  Company Number: US-PFIZER INC-2019329293

PATIENT
  Age: 63 Year
  Sex: Female
  Weight: 55.78 kg

DRUGS (23)
  1. ROPINIROLE. [Concomitant]
     Active Substance: ROPINIROLE
     Indication: RESTLESS LEGS SYNDROME
  2. FLAXSEED [Concomitant]
     Active Substance: FLAX SEED
     Dosage: 1000 MG, UNK(1000 MG X2-MANY YEARS)
  3. ZINC SULFATE. [Concomitant]
     Active Substance: ZINC SULFATE
     Dosage: 5 MG, UNK(5MG MANY YEARS)
  4. PQQ [Concomitant]
     Dosage: 10 MG, UNK(10 MG X 1 MAY BE 1-2 YEARS AGO I STARTED )
  5. LYRICA [Suspect]
     Active Substance: PREGABALIN
     Dosage: 75 MG, UNK
  6. CLONAZEPAM. [Concomitant]
     Active Substance: CLONAZEPAM
     Indication: PANIC ATTACK
     Dosage: 2.225 MG, UNK(REDUCED 6 MG (SINCE 2000) TO 2.225 MG)
  7. CLONAZEPAM. [Concomitant]
     Active Substance: CLONAZEPAM
     Indication: RESTLESS LEGS SYNDROME
     Dosage: 2.25 MG, UNK(2.25 MG (CURRENTLY))
  8. LAMOTRIGINE ARROW LAB [Concomitant]
     Dosage: 200 MG, UNK(200 MGX2 )
     Dates: start: 2005
  9. VITAMIN D3 [Concomitant]
     Active Substance: CHOLECALCIFEROL
     Dosage: 200 IU, UNK
  10. LYRICA [Suspect]
     Active Substance: PREGABALIN
     Indication: FIBROMYALGIA
     Dosage: 25 MG, 1X/DAY
     Dates: start: 2007
  11. ALFA LIPOIC ACID [Concomitant]
     Dosage: 60 MG, UNK(60 MG X 1)
  12. BUPROPION. [Concomitant]
     Active Substance: BUPROPION
     Dosage: 300 MG, UNK
     Dates: start: 2000
  13. ROPINIROLE. [Concomitant]
     Active Substance: ROPINIROLE
     Indication: PERIODIC LIMB MOVEMENT DISORDER
     Dosage: UNK
     Dates: start: 2003
  14. MAGNESIUM OXIDE. [Concomitant]
     Active Substance: MAGNESIUM OXIDE
     Dosage: 133 MG, UNK
  15. VITAMIN C [Concomitant]
     Active Substance: ASCORBIC ACID
     Dosage: 500 MG, UNK(500 MG X 1-2 TWICE PER DAY)
  16. CLONAZEPAM. [Concomitant]
     Active Substance: CLONAZEPAM
     Indication: ANXIETY
     Dosage: 6 MG, UNK
     Dates: start: 1998
  17. CALCIUM CARBONATE. [Concomitant]
     Active Substance: CALCIUM CARBONATE
     Dosage: 333 MG, UNK
  18. LYRICA [Suspect]
     Active Substance: PREGABALIN
     Indication: ARTHRALGIA
     Dosage: 25 MG, 2X/DAY
  19. LYRICA [Suspect]
     Active Substance: PREGABALIN
     Indication: BIPOLAR DISORDER
     Dosage: 50 MG, 1X/DAY
  20. SERTRALINE [Concomitant]
     Active Substance: SERTRALINE HYDROCHLORIDE
     Dosage: UNK
     Dates: start: 2015
  21. CENTRUM SILVER WOMEN 50+ [Concomitant]
     Active Substance: MINERALS\VITAMINS
     Dosage: UNK
  22. VITAMIN D [ERGOCALCIFEROL] [Concomitant]
     Active Substance: ERGOCALCIFEROL
     Dosage: 1000 MG, 2X/DAY(1000 MG 2X/DAY MAY BE SINCE 2013)
     Dates: start: 2013
  23. WARFARIN [Concomitant]
     Active Substance: WARFARIN
     Indication: MESENTERIC VEIN THROMBOSIS
     Dosage: 10 MG, UNK
     Dates: start: 201804

REACTIONS (1)
  - Confusional state [Unknown]
